FAERS Safety Report 5821648-3 (Version None)
Quarter: 2008Q3

REPORT INFORMATION
  Report Type: 
  Country: None (occurrence: None)
  Receive Date: 20080722
  Receipt Date: 20080714
  Transmission Date: 20090109
  Serious: Yes (Hospitalization)
  Sender: FDA-Public Use
  Company Number: 163-21880-0807075

PATIENT
  Age: 76 Year
  Sex: Female

DRUGS (1)
  1. REVLIMID [Suspect]
     Indication: MULTIPLE MYELOMA
     Dosage: 15 MG, DAILY FOR 21 DAYS OF 28 DAYS, ORAL
     Route: 048
     Dates: start: 20071129, end: 20080601

REACTIONS (3)
  - INFECTION [None]
  - LEUKAEMIA [None]
  - PYREXIA [None]
